FAERS Safety Report 6744854-2 (Version None)
Quarter: 2010Q2

REPORT INFORMATION
  Report Type: 
  Country: None (occurrence: None)
  Receive Date: 20100527
  Receipt Date: 20100331
  Transmission Date: 20101027
  Serious: No
  Sender: FDA-Public Use
  Company Number: US-BRISTOL-MYERS SQUIBB COMPANY-15049224

PATIENT
  Age: 53 Year
  Sex: Male

DRUGS (4)
  1. ONGLYZA [Suspect]
     Dosage: REDUCED TO 2.5MG
  2. GLYBURIDE [Suspect]
  3. METFORMIN HCL [Suspect]
  4. ACTOS [Concomitant]

REACTIONS (1)
  - DYSPEPSIA [None]
